FAERS Safety Report 7380795-8 (Version None)
Quarter: 2011Q1

REPORT INFORMATION
  Report Type: 
  Country: None (occurrence: None)
  Receive Date: 20110329
  Receipt Date: 20110323
  Transmission Date: 20110831
  Serious: Yes (Hospitalization)
  Sender: FDA-Public Use
  Company Number: A0899048A

PATIENT
  Age: 70 Year
  Sex: Female

DRUGS (1)
  1. AVANDIA [Suspect]
     Dosage: 8MG PER DAY
     Route: 048
     Dates: start: 20060101, end: 20081104

REACTIONS (4)
  - CARDIAC FAILURE CONGESTIVE [None]
  - VASCULAR GRAFT [None]
  - RENAL DISORDER [None]
  - MYOCARDIAL INFARCTION [None]
